FAERS Safety Report 8238829-4 (Version None)
Quarter: 2012Q1

REPORT INFORMATION
  Report Type: 
  Country: None (occurrence: None)
  Receive Date: 20120327
  Receipt Date: 20120320
  Transmission Date: 20120608
  Serious: Yes (Hospitalization, Other)
  Sender: FDA-Public Use
  Company Number: US-PFIZER INC-2011315969

PATIENT
  Sex: Female
  Weight: 95.238 kg

DRUGS (18)
  1. ADVAIR DISKUS 100/50 [Concomitant]
     Indication: ASTHMA
  2. CITALOPRAM [Concomitant]
     Indication: DEPRESSION
     Dosage: 40 MG, DAILY
  3. LYRICA [Suspect]
     Indication: DIABETIC NEUROPATHY
     Dosage: 150 MG, 2X/DAY
     Route: 048
     Dates: start: 20090101, end: 20111201
  4. ADVAIR DISKUS 100/50 [Concomitant]
     Indication: CHRONIC OBSTRUCTIVE PULMONARY DISEASE
  5. ALBUTEROL SULFATE [Concomitant]
     Indication: CHRONIC OBSTRUCTIVE PULMONARY DISEASE
  6. GLIMEPIRIDE [Concomitant]
     Indication: DIABETES MELLITUS
     Dosage: 1 MG, DAILY
  7. ADVAIR DISKUS 100/50 [Concomitant]
     Indication: SINUSITIS
     Dosage: 250/50 UG, 2X/DAY
  8. LEVOTHYROXINE SODIUM [Concomitant]
     Indication: THYROID DISORDER
     Dosage: 100 UG, DAILY
     Dates: start: 20050101
  9. METOLAZONE [Concomitant]
     Indication: CARDIAC FAILURE CONGESTIVE
     Dosage: 2.5 MG, ALTERNATE DAY
  10. FENOFIBRATE [Concomitant]
     Indication: BLOOD TRIGLYCERIDES INCREASED
     Dosage: 160 MG, DAILY
     Dates: start: 20050101
  11. ALBUTEROL SULFATE [Concomitant]
     Indication: ASTHMA
  12. LYRICA [Suspect]
     Indication: FIBROMYALGIA
  13. ALBUTEROL SULFATE [Concomitant]
     Indication: SINUSITIS
     Dosage: UNK, 2X/DAY AS NEEDED
  14. LANTUS [Concomitant]
     Indication: DIABETES MELLITUS
     Dosage: 30 IU, DAILY
  15. LASIX [Concomitant]
     Indication: CARDIAC FAILURE CONGESTIVE
     Dosage: 40 MG, ALTERNATE DAY
  16. PREVACID [Concomitant]
     Indication: GASTROOESOPHAGEAL REFLUX DISEASE
     Dosage: 15 MG, DAILY
     Dates: start: 20020101
  17. NEURONTIN [Suspect]
     Indication: DIABETIC NEUROPATHY
     Dosage: 300 MG, 3X/DAY
     Dates: start: 20120110, end: 20120101
  18. NEURONTIN [Suspect]
     Indication: FIBROMYALGIA
     Dosage: 600MG IN MORNING, 300MG IN AFTERNOON AND 600MG IN EVENING
     Dates: start: 20120101, end: 20120120

REACTIONS (5)
  - DYSKINESIA [None]
  - DRUG INEFFECTIVE [None]
  - PNEUMONIA [None]
  - PAIN [None]
  - GAIT DISTURBANCE [None]
